FAERS Safety Report 11199629 (Version 1)
Quarter: 2015Q2

REPORT INFORMATION
  Report Type: Spontaneous
  Country: US (occurrence: US)
  Receive Date: 20150618
  Receipt Date: 20150618
  Transmission Date: 20150821
  Serious: No
  Sender: FDA-Public Use
  Company Number: US-PFIZER INC-2015201225

PATIENT
  Age: 74 Year
  Sex: Male
  Weight: 76 kg

DRUGS (5)
  1. LYRICA [Suspect]
     Active Substance: PREGABALIN
     Dosage: 100 MG, UNK
  2. LYRICA [Suspect]
     Active Substance: PREGABALIN
     Indication: NEUROPATHY PERIPHERAL
     Dosage: 25 MG, UNK
  3. LYRICA [Suspect]
     Active Substance: PREGABALIN
     Dosage: 50 MG, UNK
  4. LYRICA [Suspect]
     Active Substance: PREGABALIN
     Dosage: 75 MG, 4X/DAY
  5. LYRICA [Suspect]
     Active Substance: PREGABALIN
     Dosage: 75 MG, 3X/DAY

REACTIONS (11)
  - Fear [Unknown]
  - Abdominal pain upper [Unknown]
  - Poor quality sleep [Unknown]
  - Gingival swelling [Unknown]
  - Somnolence [Unknown]
  - Hallucination [Unknown]
  - Irritability [Unknown]
  - Weight increased [Unknown]
  - Constipation [Unknown]
  - Fatigue [Unknown]
  - Dry mouth [Unknown]
